FAERS Safety Report 7830971-2 (Version None)
Quarter: 2011Q4

REPORT INFORMATION
  Report Type: 
  Country: None (occurrence: None)
  Receive Date: 20111019
  Receipt Date: 20111006
  Transmission Date: 20120403
  Serious: Yes (Hospitalization)
  Sender: FDA-Public Use
  Company Number: 1000023574

PATIENT
  Age: 84 Year
  Sex: Male

DRUGS (5)
  1. ARICEPT D (DONEPEZIL HYDROCHLORIDE) (DONEPEZIL HYDROCHLORIDE) [Concomitant]
  2. MEMANTINE [Suspect]
     Indication: DEMENTIA ALZHEIMER'S TYPE
     Dosage: 2O MG (20 MG,1 IN 1 D)
     Dates: start: 20110715, end: 20110101
  3. MEMANTINE [Suspect]
     Indication: DEMENTIA ALZHEIMER'S TYPE
     Dosage: 5 MG (5 MG,1 IN 1 D) ; 10 MG (10 MG,1 IN 1 D) ; 15 MG (15 MG,1 IN 1 D)
     Dates: start: 20110623, end: 20110101
  4. MEMANTINE [Suspect]
     Indication: DEMENTIA ALZHEIMER'S TYPE
     Dosage: 5 MG (5 MG,1 IN 1 D) ; 10 MG (10 MG,1 IN 1 D) ; 15 MG (15 MG,1 IN 1 D)
     Dates: start: 20110101, end: 20110714
  5. MEMANTINE [Suspect]
     Indication: DEMENTIA ALZHEIMER'S TYPE
     Dosage: 5 MG (5 MG,1 IN 1 D) ; 10 MG (10 MG,1 IN 1 D) ; 15 MG (15 MG,1 IN 1 D)
     Dates: start: 20110101, end: 20110101

REACTIONS (1)
  - PYREXIA [None]
